FAERS Safety Report 4267082-1 (Version None)
Quarter: 2004Q1

REPORT INFORMATION
  Report Type: 
  Country: None (occurrence: None)
  Receive Date: 20040108
  Receipt Date: 20031208
  Transmission Date: 20041129
  Serious: Yes (Life-Threatening)
  Sender: FDA-Public Use
  Company Number: PHBS2003JP13732

PATIENT
  Sex: Male
  Weight: 3 kg

DRUGS (4)
  1. RITALIN [Suspect]
     Route: 064
  2. PAXIL [Suspect]
     Route: 064
  3. ROHYPNOL [Suspect]
     Route: 064
  4. SOLANAX [Suspect]
     Route: 064

REACTIONS (12)
  - APGAR SCORE LOW [None]
  - CYANOSIS CENTRAL [None]
  - DRUG ABUSER [None]
  - DRUG EXPOSURE DURING PREGNANCY [None]
  - DRUG TOXICITY [None]
  - DRUG WITHDRAWAL SYNDROME NEONATAL [None]
  - HYPOTONIA NEONATAL [None]
  - IRRITABILITY [None]
  - MECONIUM STAIN [None]
  - NEONATAL APNOEIC ATTACK [None]
  - NEONATAL DISORDER [None]
  - TREMOR NEONATAL [None]
